FAERS Safety Report 7030837-4 (Version None)
Quarter: 2010Q4

REPORT INFORMATION
  Report Type: 
  Country: None (occurrence: None)
  Receive Date: 20101006
  Receipt Date: 20100924
  Transmission Date: 20110411
  Serious: Yes (Hospitalization, Disabling, Other)
  Sender: FDA-Public Use
  Company Number: US-SANOFI-AVENTIS-A03200701985

PATIENT
  Age: 57 Year
  Sex: Female
  Weight: 147.41 kg

DRUGS (32)
  1. PLAVIX [Suspect]
     Indication: STENT PLACEMENT
     Dosage: UNIT DOSE: 75 MG
     Route: 048
     Dates: start: 19991101, end: 20090201
  2. ASPIRIN [Concomitant]
     Route: 065
  3. VERAPAMIL [Concomitant]
  4. AMITRIPTYLINE [Concomitant]
  5. LASIX [Concomitant]
  6. K-DUR [Concomitant]
     Route: 048
  7. TYLENOL W/ CODEINE NO. 3 [Concomitant]
     Indication: PAIN
  8. PREMARIN [Concomitant]
  9. NOVOLIN 70/30 [Concomitant]
     Dosage: DOSE:50 UNIT(S)
  10. ISOSORBIDE [Concomitant]
  11. ISOSORBIDE [Concomitant]
  12. TRUSOPT [Concomitant]
     Dosage: ONE DROP IN RIGHT EYE TWICE A DAY
     Route: 031
  13. ALPHAGAN [Concomitant]
     Dosage: ONE DROP IN RIGHT EYE TWICE A DAY
  14. DIOVAN [Concomitant]
  15. ZAROXOLYN [Concomitant]
  16. URO-MAG [Concomitant]
  17. HYDRALAZINE HCL [Concomitant]
     Dosage: THREE TABLETS DAILY
  18. HYDRALAZINE HCL [Concomitant]
     Dosage: THREE TABLETS DAILY
  19. VITAMIN E [Concomitant]
  20. AZMACORT [Concomitant]
     Dosage: DOSE:3 PUFF(S)
  21. ALBUTEROL [Concomitant]
     Dosage: TWO PUFFS EVERY 4-6 YOURS AS NEEDED DOSE:2 PUFF(S)
  22. OXYGEN [Concomitant]
  23. ALLOPURINOL [Concomitant]
  24. COLCHICINE [Concomitant]
  25. NEURONTIN [Concomitant]
  26. VITAMIN B6 [Concomitant]
  27. CARDURA /IRE/ [Concomitant]
  28. ZESTRIL [Concomitant]
  29. IBUPROFEN [Concomitant]
  30. COZAAR [Concomitant]
  31. COZAAR [Concomitant]
  32. XENICAL [Concomitant]

REACTIONS (20)
  - ABASIA [None]
  - ANTINUCLEAR ANTIBODY POSITIVE [None]
  - BALANCE DISORDER [None]
  - BLINDNESS [None]
  - BLOOD CREATININE INCREASED [None]
  - BLOOD UREA INCREASED [None]
  - BLOOD URIC ACID INCREASED [None]
  - DIZZINESS [None]
  - DYSPNOEA [None]
  - EPISTAXIS [None]
  - FAECES DISCOLOURED [None]
  - FEELING ABNORMAL [None]
  - GASTROINTESTINAL HAEMORRHAGE [None]
  - GOUT [None]
  - HAEMORRHAGIC ANAEMIA [None]
  - HYPOKALAEMIA [None]
  - PALLOR [None]
  - RHEUMATOID FACTOR INCREASED [None]
  - VISION BLURRED [None]
  - VITREOUS HAEMORRHAGE [None]
